FAERS Safety Report 8787799 (Version 1)
Quarter: 2012Q4

REPORT INFORMATION
  Report Type: 
  Country: US (occurrence: US)
  Receive Date: 20120914
  Receipt Date: 20120914
  Transmission Date: 20130627
  Serious: Yes (Hospitalization)
  Sender: FDA-Public Use
  Company Number: US-VERTEX PHARMACEUTICAL INC.-AE-2012-005036

PATIENT
  Sex: Female

DRUGS (9)
  1. INCIVEK [Suspect]
     Indication: HEPATITIS C
     Route: 048
     Dates: start: 20120320, end: 201207
  2. RIBAVIRIN [Concomitant]
     Indication: HEPATITIS C
     Route: 048
     Dates: start: 20120320
  3. RIBAVIRIN [Concomitant]
     Route: 048
  4. PEGASYS [Concomitant]
     Indication: HEPATITIS C
     Route: 058
     Dates: start: 20120320
  5. PEGASYS [Concomitant]
     Route: 058
  6. AMLODIPINE [Concomitant]
  7. LOSARTAN [Concomitant]
  8. B COMPLEX [Concomitant]
  9. CALTRATE [Concomitant]

REACTIONS (3)
  - Anaemia [Unknown]
  - Neutropenia [Unknown]
  - Rash macular [Recovered/Resolved]
